FAERS Safety Report 9473948 (Version 1)
Quarter: 2013Q3

REPORT INFORMATION
  Report Type: Spontaneous
  Country: US (occurrence: US)
  Receive Date: 20130823
  Receipt Date: 20130823
  Transmission Date: 20140515
  Serious: No
  Sender: FDA-Public Use
  Company Number: US-BRISTOL-MYERS SQUIBB COMPANY-17173709

PATIENT
  Age: 66 Year
  Sex: Male
  Weight: 97.5 kg

DRUGS (7)
  1. SPRYCEL [Suspect]
     Indication: CHRONIC MYELOID LEUKAEMIA
     Dates: start: 20121120
  2. ASPIRIN [Concomitant]
  3. LISINOPRIL [Concomitant]
     Dosage: 5MG QAM AND 10MG QPM
  4. CARVEDILOL [Concomitant]
  5. ZOLOFT [Concomitant]
  6. CARDURA [Concomitant]
  7. AMBIEN [Concomitant]

REACTIONS (3)
  - Headache [Unknown]
  - Bone pain [Unknown]
  - Drug dose omission [Unknown]
